FAERS Safety Report 17999848 (Version 2)
Quarter: 2020Q4

REPORT INFORMATION
  Report Type: Spontaneous
  Country: US (occurrence: US)
  Receive Date: 20200709
  Receipt Date: 20201105
  Transmission Date: 20210113
  Serious: No
  Sender: FDA-Public Use
  Company Number: US-PFIZER INC-2020260382

PATIENT
  Age: 59 Year
  Sex: Female
  Weight: 104.33 kg

DRUGS (1)
  1. SERTRALINE HCL [Suspect]
     Active Substance: SERTRALINE HYDROCHLORIDE
     Dosage: 50 MG

REACTIONS (3)
  - Depression [Unknown]
  - Illness [Unknown]
  - Drug ineffective [Unknown]
